FAERS Safety Report 21035253 (Version 2)
Quarter: 2022Q3

REPORT INFORMATION
  Report Type: Spontaneous
  Country: IE (occurrence: US)
  Receive Date: 20220701
  Receipt Date: 20220805
  Transmission Date: 20221027
  Serious: Yes (Hospitalization)
  Sender: FDA-Public Use
  Company Number: IE-BAYER-2022A087097

PATIENT
  Sex: Female
  Weight: 138.32 kg

DRUGS (4)
  1. STIVARGA [Suspect]
     Active Substance: REGORAFENIB
     Indication: Colon cancer
     Dosage: UNK
     Dates: start: 20220207, end: 20220411
  2. LONSURF [Suspect]
     Active Substance: TIPIRACIL HYDROCHLORIDE\TRIFLURIDINE
     Indication: Colon cancer
     Dosage: 60 MG, QD
     Route: 048
     Dates: start: 20220428, end: 20220607
  3. LEVOTHYROXINE [Concomitant]
     Active Substance: LEVOTHYROXINE
     Dosage: UNK
  4. TRAMADOL HCL [Concomitant]
     Active Substance: TRAMADOL HYDROCHLORIDE
     Dosage: UNK

REACTIONS (8)
  - Hepatic pain [Unknown]
  - Intestinal haemorrhage [Unknown]
  - Skin abrasion [Recovering/Resolving]
  - Pain in extremity [Recovering/Resolving]
  - Palmar-plantar erythrodysaesthesia syndrome [Unknown]
  - Vomiting [Recovering/Resolving]
  - Sinusitis [None]
  - White blood cell count decreased [Unknown]

NARRATIVE: CASE EVENT DATE: 20220329
